FAERS Safety Report 15584689 (Version 2)
Quarter: 2018Q4

REPORT INFORMATION
  Report Type: Spontaneous
  Country: US (occurrence: US)
  Receive Date: 20181102
  Receipt Date: 20181114
  Transmission Date: 20190205
  Serious: Yes (Hospitalization)
  Sender: FDA-Public Use
  Company Number: US-FRESENIUS MEDICAL CARE RENAL THERAPIES GROUP-FMC-1811-001913

PATIENT
  Age: 63 Year
  Sex: Male

DRUGS (16)
  1. TAMSULOSIN [Concomitant]
     Active Substance: TAMSULOSIN
  2. LISINOPRIL. [Concomitant]
     Active Substance: LISINOPRIL
  3. SYMBICORT [Concomitant]
     Active Substance: BUDESONIDE\FORMOTEROL FUMARATE DIHYDRATE
  4. ISOSORBIDE MONONITRATE. [Concomitant]
     Active Substance: ISOSORBIDE MONONITRATE
  5. DELFLEX WITH DEXTROSE 2.5% LOW MAGNESIUM LOW CALCIUM [Suspect]
     Active Substance: CALCIUM CHLORIDE\DEXTROSE\MAGNESIUM CHLORIDE\SODIUM CHLORIDE\SODIUM LACTATE
     Indication: END STAGE RENAL DISEASE
     Dosage: 4 EXCHANGES, FILL VOLUME OF 2000ML AND LAST FILL OF 1000ML.
     Route: 033
     Dates: start: 20180806
  6. POTASSIUM CHLORIDE. [Concomitant]
     Active Substance: POTASSIUM CHLORIDE
  7. SOTALOL. [Concomitant]
     Active Substance: SOTALOL
  8. CARVEDILOL. [Concomitant]
     Active Substance: CARVEDILOL
  9. APIXABAN [Concomitant]
     Active Substance: APIXABAN
  10. TIOTROPIUM [Concomitant]
     Active Substance: TIOTROPIUM
  11. ASPIRIN. [Concomitant]
     Active Substance: ASPIRIN
  12. CALCIUM CARBONATE. [Concomitant]
     Active Substance: CALCIUM CARBONATE
  13. ATORVASTATIN [Concomitant]
     Active Substance: ATORVASTATIN
  14. DELFLEX WITH DEXTROSE 1.5% LOW MAGNESIUM LOW CALCIUM [Suspect]
     Active Substance: CALCIUM CHLORIDE\DEXTROSE\MAGNESIUM CHLORIDE\SODIUM CHLORIDE\SODIUM LACTATE
     Indication: END STAGE RENAL DISEASE
     Dosage: 4 EXCHANGES, FILL VOLUME OF 2000ML AND LAST FILL OF 1000ML.
     Route: 033
     Dates: start: 20180806
  15. FUROSEMIDE. [Concomitant]
     Active Substance: FUROSEMIDE
  16. ALBUTEROL. [Concomitant]
     Active Substance: ALBUTEROL

REACTIONS (3)
  - Fluid overload [Recovered/Resolved]
  - Cardiac failure congestive [Recovered/Resolved]
  - Atrial fibrillation [Recovered/Resolved]

NARRATIVE: CASE EVENT DATE: 20181024
